FAERS Safety Report 14694403 (Version 1)
Quarter: 2018Q1

REPORT INFORMATION
  Report Type: Spontaneous
  Country: US (occurrence: US)
  Receive Date: 20180329
  Receipt Date: 20180329
  Transmission Date: 20180509
  Serious: Yes (Hospitalization, Other)
  Sender: FDA-Public Use
  Company Number: US-DRREDDYS-USA/USA/18/0097200

PATIENT
  Age: 29 Year
  Sex: Male

DRUGS (4)
  1. MESALAMINE. [Suspect]
     Active Substance: MESALAMINE
     Indication: COLITIS ULCERATIVE
     Route: 065
  2. SIROLIMUS. [Suspect]
     Active Substance: SIROLIMUS
     Indication: IMMUNOSUPPRESSION
     Route: 065
  3. MERCAPTOPURINE. [Suspect]
     Active Substance: MERCAPTOPURINE
     Indication: IMMUNOSUPPRESSION
     Route: 065
  4. BUDESONIDE. [Suspect]
     Active Substance: BUDESONIDE
     Indication: IMMUNOSUPPRESSION
     Route: 065

REACTIONS (9)
  - Haemorrhagic diathesis [Unknown]
  - Epistaxis [Unknown]
  - Drug interaction [Unknown]
  - Cellulitis [Recovering/Resolving]
  - Colitis ulcerative [Unknown]
  - Pancytopenia [Recovering/Resolving]
  - Bone marrow failure [Unknown]
  - Febrile neutropenia [Unknown]
  - C-reactive protein increased [Unknown]
